FAERS Safety Report 17366852 (Version 1)
Quarter: 2020Q1

REPORT INFORMATION
  Report Type: Spontaneous
  Country: PL (occurrence: PL)
  Receive Date: 20200204
  Receipt Date: 20200204
  Transmission Date: 20200409
  Serious: Yes (Other)
  Sender: FDA-Public Use
  Company Number: PL-US-PROVELL PHARMACEUTICALS LLC-9142202

PATIENT
  Sex: Male

DRUGS (2)
  1. EUTHYROX [Suspect]
     Active Substance: LEVOTHYROXINE SODIUM
     Dosage: CURRENTLY ON 50/75 DOSE AND UNDERGOING GRADUAL WITHDRAWAL
  2. EUTHYROX [Suspect]
     Active Substance: LEVOTHYROXINE SODIUM
     Indication: PRODUCT USED FOR UNKNOWN INDICATION

REACTIONS (6)
  - Bradycardia [Recovered/Resolved]
  - Phaeochromocytoma [Unknown]
  - Wrong product administered [Unknown]
  - Mydriasis [Recovered/Resolved]
  - Tachycardia paroxysmal [Recovered/Resolved]
  - Adverse event [Unknown]
